FAERS Safety Report 25531660 (Version 1)
Quarter: 2025Q3

REPORT INFORMATION
  Report Type: Spontaneous
  Country: EU (occurrence: EU)
  Receive Date: 20250709
  Receipt Date: 20250709
  Transmission Date: 20251021
  Serious: Yes (Other)
  Sender: TEVA
  Company Number: None

PATIENT
  Age: 73 Year
  Sex: Female
  Weight: 75 kg

DRUGS (5)
  1. FEXOFENADINE [Suspect]
     Active Substance: FEXOFENADINE HYDROCHLORIDE
     Indication: Seasonal allergy
     Dosage: 1XDGS FEXOFENADINE TABLET OMHULD 120MG / BRAND NAME NOT SPECIFIED
     Route: 048
     Dates: start: 20250527, end: 20250604
  2. VALSARTAN TABLET OMHULD  80MG / Brand name not specified [Concomitant]
     Indication: Product used for unknown indication
     Route: 048
  3. ROSUVASTATINE TABLET  5MG / Brand name not specified [Concomitant]
     Indication: Product used for unknown indication
     Route: 048
  4. PRADAXA [Concomitant]
     Active Substance: DABIGATRAN ETEXILATE MESYLATE
     Indication: Product used for unknown indication
     Route: 048
  5. VERAPAMIL [Concomitant]
     Active Substance: VERAPAMIL HYDROCHLORIDE
     Indication: Product used for unknown indication
     Route: 048

REACTIONS (2)
  - Arrhythmia [Recovered/Resolved]
  - Heart rate increased [Recovered/Resolved]
